FAERS Safety Report 4326287-1 (Version None)
Quarter: 2004Q1

REPORT INFORMATION
  Report Type: 
  Country: None (occurrence: None)
  Receive Date: 20040324
  Receipt Date: 20040310
  Transmission Date: 20041129
  Serious: Yes (Hospitalization)
  Sender: FDA-Public Use
  Company Number: USA040361612

PATIENT
  Age: 55 Year
  Sex: Female
  Weight: 95 kg

DRUGS (2)
  1. HUMULIN N [Suspect]
     Dosage: 65 U/2 DAY
     Dates: start: 19890101
  2. HUMULIN R [Suspect]
     Dates: start: 20040101

REACTIONS (4)
  - BACK PAIN [None]
  - FEELING ABNORMAL [None]
  - HYPOGLYCAEMIA [None]
  - NEUROPATHY [None]
